FAERS Safety Report 24218895 (Version 2)
Quarter: 2024Q4

REPORT INFORMATION
  Report Type: Spontaneous
  Country: US (occurrence: US)
  Receive Date: 20240816
  Receipt Date: 20241129
  Transmission Date: 20250115
  Serious: No
  Sender: SANOFI AVENTIS
  Company Number: US-SA-SAC20240812000946

PATIENT
  Sex: Female
  Weight: 42.63 kg

DRUGS (6)
  1. DUPIXENT [Suspect]
     Active Substance: DUPILUMAB
     Indication: Dermatitis atopic
     Dosage: 200 MG, QOW
     Route: 058
     Dates: start: 202312
  2. HYDROCORTISONE [Concomitant]
     Active Substance: HYDROCORTISONE
  3. HYDROXYZINE HYDROCHLORIDE [Concomitant]
     Active Substance: HYDROXYZINE HYDROCHLORIDE
  4. ACETAMINOPHEN [Concomitant]
     Active Substance: ACETAMINOPHEN
  5. CHILDRENS ADVIL [Concomitant]
     Active Substance: IBUPROFEN
  6. KETOCONAZOLE [Concomitant]
     Active Substance: KETOCONAZOLE

REACTIONS (1)
  - Dermatitis atopic [Recovering/Resolving]
